FAERS Safety Report 6388632-5 (Version None)
Quarter: 2009Q4

REPORT INFORMATION
  Report Type: 
  Country: None (occurrence: None)
  Receive Date: 20091005
  Receipt Date: 20091002
  Transmission Date: 20100525
  Serious: Yes (Other)
  Sender: FDA-Public Use
  Company Number: US-PFIZER INC-2009210808

PATIENT
  Sex: Female
  Weight: 90.703 kg

DRUGS (3)
  1. RELPAX [Suspect]
     Indication: MIGRAINE
     Dosage: 40 MG, AS NEEDED
     Route: 048
     Dates: start: 20050101
  2. ADVIL [Concomitant]
     Dosage: UNK
  3. ALEVE [Concomitant]
     Dosage: UNK

REACTIONS (3)
  - ARNOLD-CHIARI MALFORMATION [None]
  - ILL-DEFINED DISORDER [None]
  - MIGRAINE [None]
